FAERS Safety Report 7398821-9 (Version None)
Quarter: 2011Q2

REPORT INFORMATION
  Report Type: 
  Country: None (occurrence: None)
  Receive Date: 20110407
  Receipt Date: 20110225
  Transmission Date: 20111010
  Serious: Yes (Other)
  Sender: FDA-Public Use
  Company Number: DE-EISAI INC-E3810-04447-SPO-DE

PATIENT
  Sex: Female
  Weight: 72 kg

DRUGS (1)
  1. PARIET (RABEPRAZOLE) [Suspect]
     Indication: REFLUX OESOPHAGITIS
     Route: 048
     Dates: start: 19980101

REACTIONS (2)
  - ARTHRALGIA [None]
  - TENDON PAIN [None]
